FAERS Safety Report 7910187-1 (Version None)
Quarter: 2011Q4

REPORT INFORMATION
  Report Type: 
  Country: None (occurrence: None)
  Receive Date: 20111111
  Receipt Date: 20111102
  Transmission Date: 20120403
  Serious: Yes (Other)
  Sender: FDA-Public Use
  Company Number: AR-ROCHE-1011707

PATIENT
  Sex: Female

DRUGS (3)
  1. LUCENTIS [Suspect]
     Indication: VISUAL ACUITY REDUCED
     Route: 050
     Dates: start: 20110601
  2. LUCENTIS [Suspect]
     Route: 050
     Dates: start: 20110901
  3. LUCENTIS [Suspect]
     Route: 050
     Dates: start: 20110801

REACTIONS (2)
  - RETINAL DETACHMENT [None]
  - TACHYCARDIA [None]
